FAERS Safety Report 13437676 (Version 1)
Quarter: 2017Q2

REPORT INFORMATION
  Report Type: Spontaneous
  Country: US (occurrence: US)
  Receive Date: 20170413
  Receipt Date: 20170413
  Transmission Date: 20170830
  Serious: No
  Sender: FDA-Public Use
  Company Number: US-SA-2017SA005416

PATIENT
  Age: 13 Year
  Sex: Female

DRUGS (1)
  1. ALLEGRA-D [Suspect]
     Active Substance: FEXOFENADINE\PSEUDOEPHEDRINE
     Dosage: DOSE 180/240 MG.
     Route: 048
     Dates: start: 20170106, end: 20170107

REACTIONS (3)
  - Lacrimation increased [Unknown]
  - Hypersensitivity [Recovered/Resolved]
  - Cough [Unknown]
